FAERS Safety Report 9215975 (Version 1)
Quarter: 2013Q2

REPORT INFORMATION
  Report Type: Spontaneous
  Country: DE (occurrence: DE)
  Receive Date: 20130408
  Receipt Date: 20130408
  Transmission Date: 20140414
  Serious: Yes (Life-Threatening, Hospitalization)
  Sender: FDA-Public Use
  Company Number: DE-JNJFOC-20130318118

PATIENT
  Age: 60 Year
  Sex: Female

DRUGS (8)
  1. DUROGESIC SMAT [Suspect]
     Indication: PAIN
     Route: 062
  2. DUROGESIC SMAT [Suspect]
     Indication: PAIN
     Route: 062
     Dates: start: 20130317, end: 20130319
  3. RISPERDAL [Suspect]
     Indication: PRODUCT USED FOR UNKNOWN INDICATION
     Route: 065
  4. BEROTEC [Concomitant]
     Route: 065
  5. LAMOTRIGINE [Concomitant]
     Route: 065
  6. L-THYROX [Concomitant]
     Route: 065
  7. REMERGIL [Concomitant]
     Route: 065
  8. LEVOFLOXACIN [Concomitant]
     Route: 065

REACTIONS (2)
  - Respiratory depression [Not Recovered/Not Resolved]
  - Incorrect dose administered [Unknown]
